FAERS Safety Report 20186327 (Version 1)
Quarter: 2021Q4

REPORT INFORMATION
  Report Type: Spontaneous
  Country: IT (occurrence: IT)
  Receive Date: 20211215
  Receipt Date: 20211215
  Transmission Date: 20220304
  Serious: Yes (Other)
  Sender: FDA-Public Use
  Company Number: IT-AMGEN-ITASP2021194619

PATIENT

DRUGS (4)
  1. ADALIMUMAB [Suspect]
     Active Substance: ADALIMUMAB
     Indication: Colitis ulcerative
     Dosage: UNK
     Route: 058
  2. ADALIMUMAB [Suspect]
     Active Substance: ADALIMUMAB
     Indication: Crohn^s disease
  3. MESALAMINE [Concomitant]
     Active Substance: MESALAMINE
     Indication: Colitis ulcerative
     Route: 048
  4. MESALAMINE [Concomitant]
     Active Substance: MESALAMINE
     Indication: Crohn^s disease

REACTIONS (12)
  - Leukopenia [Recovered/Resolved]
  - Anal abscess [Unknown]
  - Eczema [Unknown]
  - Pilonidal cyst [Unknown]
  - Arthralgia [Unknown]
  - Subcutaneous abscess [Unknown]
  - Pyrexia [Unknown]
  - Injection site erythema [Unknown]
  - Herpes virus infection [Unknown]
  - Herpes zoster [Unknown]
  - Abdominal pain [Unknown]
  - Herpes dermatitis [Unknown]
